FAERS Safety Report 17455112 (Version 2)
Quarter: 2020Q4

REPORT INFORMATION
  Report Type: Report from Study
  Country: CA (occurrence: CA)
  Receive Date: 20200225
  Receipt Date: 20201203
  Transmission Date: 20210113
  Serious: Yes (Other)
  Sender: FDA-Public Use
  Company Number: CA-GLAXOSMITHKLINE-CA2020AMR030157

PATIENT
  Sex: Male

DRUGS (7)
  1. MEPOLIZUMAB [Suspect]
     Active Substance: MEPOLIZUMAB
     Indication: ASTHMA
     Dosage: 100 MG, Z(MONTHLY)
     Route: 042
     Dates: start: 20160902
  2. MEPOLIZUMAB [Suspect]
     Active Substance: MEPOLIZUMAB
     Dosage: UNK, 56 TAB 7 DAYS 5 MG TAB
     Dates: start: 20180902, end: 20190901
  3. MEPOLIZUMAB [Suspect]
     Active Substance: MEPOLIZUMAB
     Dosage: UNK,10 TAB 10 DAYS 50 MG
     Dates: start: 20150902, end: 20160901
  4. MEPOLIZUMAB [Suspect]
     Active Substance: MEPOLIZUMAB
     Dosage: UNK,30 TABLET 5 DAYS 5 MG TABS
     Dates: start: 20170902, end: 20180901
  5. MEPOLIZUMAB [Suspect]
     Active Substance: MEPOLIZUMAB
     Dosage: UNK, 56TAB TAB 07 DAYS 5 MG TAB
     Dates: start: 20190902, end: 20200901
  6. MEPOLIZUMAB [Suspect]
     Active Substance: MEPOLIZUMAB
     Dosage: UNK, 112 TAB FOR 28 DAYS 5 MG
     Dates: start: 20160902, end: 20170901
  7. MEPOLIZUMAB [Suspect]
     Active Substance: MEPOLIZUMAB
     Dosage: 100 MG, Z(MONTHLY)
     Dates: start: 20201125

REACTIONS (1)
  - Asthma [Recovering/Resolving]
